FAERS Safety Report 8216130-2 (Version None)
Quarter: 2012Q1

REPORT INFORMATION
  Report Type: 
  Country: None (occurrence: None)
  Receive Date: 20120316
  Receipt Date: 20120306
  Transmission Date: 20120608
  Serious: Yes (Hospitalization)
  Sender: FDA-Public Use
  Company Number: JP-NAPPMUNDI-MAG-2011-0001785

PATIENT
  Sex: Female

DRUGS (27)
  1. KN NO.4 [Concomitant]
     Indication: FLUID REPLACEMENT
     Dosage: 500 ML, DAILY
     Route: 042
     Dates: start: 20111011
  2. DEXTROSE [Concomitant]
     Indication: NUTRITIONAL SUPPORT
     Dosage: 500 ML, DAILY
     Route: 042
     Dates: start: 20111011
  3. KENEI G [Concomitant]
     Indication: INTESTINAL OBSTRUCTION
     Dosage: UNK
     Route: 054
     Dates: start: 20111013
  4. ZOLPIDEM [Concomitant]
     Indication: INSOMNIA
     Dosage: 10 MG, DAILY
     Dates: start: 20110708
  5. ZOLPIDEM [Concomitant]
     Dosage: UNK
     Dates: start: 20111012
  6. LANSOPRAZOLE [Concomitant]
     Indication: GASTROINTESTINAL MUCOSAL DISORDER
     Dosage: 5 MG, DAILY
     Route: 048
     Dates: start: 20111018
  7. OXYCODONE HCL [Suspect]
     Indication: CANCER PAIN
     Dosage: 50 MG, PRN
     Route: 048
     Dates: start: 20110201, end: 20111011
  8. OXYCODONE HCL [Suspect]
     Dosage: 10 MG, PRN
     Route: 048
     Dates: start: 20111004, end: 20111011
  9. RIZE                               /00624801/ [Concomitant]
     Indication: INSOMNIA
     Dosage: UNK
     Route: 048
     Dates: start: 20110708, end: 20111011
  10. ENSURE                             /06184901/ [Concomitant]
     Indication: NUTRITIONAL SUPPORT
     Dosage: UNK
     Route: 048
     Dates: start: 20111016
  11. KN SOL. 3B [Concomitant]
     Indication: FLUID REPLACEMENT
     Dosage: 500 ML, DAILY
     Route: 042
     Dates: start: 20111011
  12. TPN ELECTROLYTES IN PLASTIC CONTAINER [Concomitant]
     Indication: FLUID REPLACEMENT
     Dosage: UNK
     Route: 042
     Dates: start: 20111011
  13. LAXOBERON [Concomitant]
     Indication: INTESTINAL OBSTRUCTION
     Dosage: UNK
     Route: 048
     Dates: start: 20111016
  14. MUCOSTA [Concomitant]
     Indication: GASTROINTESTINAL MUCOSAL DISORDER
     Dosage: 300 MG, DAILY
     Route: 048
     Dates: start: 20110716, end: 20111011
  15. FLADD                              /00519101/ [Concomitant]
     Indication: NUTRITIONAL SUPPORT
     Dosage: 30 MG, DAILY
     Route: 042
     Dates: start: 20111011
  16. PRIMPERAN TAB [Concomitant]
     Indication: NAUSEA
     Dosage: 10 MG, DAILY
     Route: 042
     Dates: start: 20111011
  17. CEFMETAZOLE [Concomitant]
     Indication: INFECTION PROPHYLAXIS
     Dosage: UNK
     Route: 042
     Dates: start: 20111013
  18. DAIKENTYUTO [Concomitant]
     Indication: CANCER PAIN
     Dosage: 7.5 GRAM, DAILY
     Route: 048
     Dates: start: 20111017
  19. PANTOSIN [Concomitant]
     Indication: NUTRITIONAL SUPPORT
     Dosage: 600 MG, DAILY
     Route: 042
     Dates: start: 20111011
  20. FENTANYL-100 [Suspect]
     Indication: CANCER PAIN
     Dosage: 8.4 MG, UNK
     Route: 062
     Dates: start: 20110701, end: 20111011
  21. SHAKUYAKUKANZOTO [Concomitant]
     Indication: CANCER PAIN
     Dosage: 6 GRAM, DAILY
     Route: 048
     Dates: start: 20110801, end: 20111011
  22. ESTRANA [Concomitant]
     Indication: MENOPAUSAL SYMPTOMS
     Dosage: UNK
     Dates: start: 20110801
  23. FENTANYL-100 [Concomitant]
     Indication: CANCER PAIN
     Dosage: 14.7-50.4 MG
     Route: 042
     Dates: start: 20111012
  24. VITAMIN C                          /00008001/ [Concomitant]
     Indication: NUTRITIONAL SUPPORT
     Dosage: 200 MG, DAILY
     Route: 042
     Dates: start: 20111011
  25. KENKETSU GLOVENIN-I-NICHIYAKU [Concomitant]
     Dosage: 1000 MG, DAILY
     Route: 042
     Dates: start: 20111020, end: 20111021
  26. MAGMITT [Concomitant]
     Indication: CONSTIPATION
     Dosage: 1500 MG, DAILY
     Route: 048
     Dates: start: 20110201, end: 20111011
  27. LYRICA [Concomitant]
     Indication: CANCER PAIN
     Dosage: 150 MG, DAILY
     Route: 048
     Dates: start: 20111014

REACTIONS (1)
  - INTESTINAL OBSTRUCTION [None]
